FAERS Safety Report 12689811 (Version 2)
Quarter: 2021Q4

REPORT INFORMATION
  Report Type: Spontaneous
  Country: US (occurrence: US)
  Receive Date: 20160826
  Receipt Date: 20211206
  Transmission Date: 20220303
  Serious: Yes (Hospitalization, Other)
  Sender: FDA-Public Use
  Company Number: US-HORIZON-PRE-0055-2016

PATIENT

DRUGS (2)
  1. RAYOS [Suspect]
     Active Substance: PREDNISONE
     Indication: Pneumonia
     Dosage: UNK
     Route: 065
  2. RAYOS [Suspect]
     Active Substance: PREDNISONE
     Indication: Bronchospasm

REACTIONS (6)
  - Gastrointestinal haemorrhage [Unknown]
  - Liver abscess [Unknown]
  - Colitis [Unknown]
  - Amoebiasis [Unknown]
  - Disease complication [Unknown]
  - Off label use [Unknown]
